FAERS Safety Report 24803321 (Version 1)
Quarter: 2025Q1

REPORT INFORMATION
  Report Type: Spontaneous
  Country: US (occurrence: US)
  Receive Date: 20250103
  Receipt Date: 20250103
  Transmission Date: 20250408
  Serious: Yes (Other)
  Sender: ALKEM
  Company Number: US-ALKEM LABORATORIES LIMITED-US-ALKEM-2024-15093

PATIENT
  Age: 62 Year
  Sex: Male

DRUGS (8)
  1. AZATHIOPRINE [Suspect]
     Active Substance: AZATHIOPRINE
     Indication: Immunosuppressant drug therapy
     Dosage: 100 MILLIGRAM, QD
     Route: 065
  2. AZATHIOPRINE [Suspect]
     Active Substance: AZATHIOPRINE
     Route: 065
  3. TACROLIMUS [Suspect]
     Active Substance: TACROLIMUS
     Indication: Immunosuppressant drug therapy
     Route: 065
  4. THYMOCYTE IMMUNE GLOBULIN NOS [Suspect]
     Active Substance: THYMOCYTE IMMUNE GLOBULIN NOS
     Indication: Immunosuppressant drug therapy
     Route: 065
  5. DARUNAVIR [Concomitant]
     Active Substance: DARUNAVIR
     Indication: HIV infection
     Dosage: UNK, QD (DAILY)
     Route: 065
  6. DOLUTEGRAVIR [Concomitant]
     Active Substance: DOLUTEGRAVIR
     Indication: HIV infection
     Dosage: UNK, BID
     Route: 065
  7. ETRAVIRINE [Concomitant]
     Active Substance: ETRAVIRINE
     Indication: HIV infection
     Dosage: UNK, QD (DAILY)
     Route: 065
  8. RITONAVIR [Concomitant]
     Active Substance: RITONAVIR
     Indication: HIV infection
     Dosage: UNK, QD (DAILY)
     Route: 065

REACTIONS (3)
  - Monkeypox [Recovered/Resolved]
  - COVID-19 [Recovered/Resolved]
  - Orthopox virus infection [Recovered/Resolved]
